FAERS Safety Report 25084868 (Version 1)
Quarter: 2025Q1

REPORT INFORMATION
  Report Type: Spontaneous
  Country: US (occurrence: US)
  Receive Date: 20250317
  Receipt Date: 20250317
  Transmission Date: 20250408
  Serious: No
  Sender: MYLAN
  Company Number: US-MYLANLABS-2025M1020367

PATIENT
  Age: 78 Year
  Sex: Female
  Weight: 52.16 kg

DRUGS (8)
  1. TOBI PODHALER [Suspect]
     Active Substance: TOBRAMYCIN
     Indication: Pseudomonas infection
     Dosage: 112 MILLIGRAM, BID (2 TIMES A DAY FOR 28 DAYS THEN 28 DAYS OFF)
  2. AZITHROMYCIN [Concomitant]
     Active Substance: AZITHROMYCIN
     Dosage: UNK UNK, 3XW
  3. VITAMIN C [Concomitant]
     Active Substance: ASCORBIC ACID
  4. CALCIUM [Concomitant]
     Active Substance: CALCIUM
  5. FAMOTIDINE [Concomitant]
     Active Substance: FAMOTIDINE
  6. BIOTIN [Concomitant]
     Active Substance: BIOTIN
  7. RESTASIS [Concomitant]
     Active Substance: CYCLOSPORINE
  8. SYNTHROID [Concomitant]
     Active Substance: LEVOTHYROXINE SODIUM

REACTIONS (8)
  - Oropharyngeal pain [Recovering/Resolving]
  - Tinnitus [Recovering/Resolving]
  - Perioral dermatitis [Recovering/Resolving]
  - Incorrect dose administered [Unknown]
  - Device difficult to use [Unknown]
  - Device issue [Unknown]
  - Wrong technique in product usage process [Unknown]
  - Circumstance or information capable of leading to medication error [Unknown]

NARRATIVE: CASE EVENT DATE: 20250303
